FAERS Safety Report 4774393-X (Version None)
Quarter: 2005Q3

REPORT INFORMATION
  Report Type: 
  Country: None (occurrence: None)
  Receive Date: 20050919
  Receipt Date: 20041111
  Transmission Date: 20060218
  Serious: Yes (Other)
  Sender: FDA-Public Use
  Company Number: HQWYE462415NOV04

PATIENT
  Age: 35 Year
  Sex: Male
  Weight: 83.99 kg

DRUGS (1)
  1. ADVIL [Suspect]
     Indication: HEADACHE
     Dosage: 2 LIQUID GELS ONCE, ORAL
     Route: 048
     Dates: start: 20041103, end: 20041103

REACTIONS (1)
  - ANAPHYLACTIC REACTION [None]
